FAERS Safety Report 5267304-4 (Version None)
Quarter: 2007Q1

REPORT INFORMATION
  Report Type: 
  Country: None (occurrence: None)
  Receive Date: 20070316
  Receipt Date: 20070309
  Transmission Date: 20070707
  Serious: Yes (Other)
  Sender: FDA-Public Use
  Company Number: JP-GLAXOSMITHKLINE-B0461005A

PATIENT
  Age: 11 Year
  Sex: Male
  Weight: 38 kg

DRUGS (4)
  1. RELENZA [Suspect]
     Indication: INFLUENZA
     Dosage: 5MG PER DAY
     Route: 055
     Dates: start: 20070228, end: 20070302
  2. BIOFERMIN [Concomitant]
     Indication: VOMITING
     Dosage: 3G PER DAY
     Route: 048
     Dates: start: 20070228
  3. NAUZELIN [Concomitant]
     Indication: VOMITING
     Dosage: 30MG PER DAY
     Route: 048
     Dates: start: 20070228
  4. CALONAL [Concomitant]
     Route: 048
     Dates: start: 20070228

REACTIONS (1)
  - DELIRIUM [None]
